FAERS Safety Report 25111914 (Version 1)
Quarter: 2025Q1

REPORT INFORMATION
  Report Type: Spontaneous
  Country: FR (occurrence: FR)
  Receive Date: 20250324
  Receipt Date: 20250324
  Transmission Date: 20250409
  Serious: Yes (Hospitalization, Other)
  Sender: NOVARTIS
  Company Number: FR-002147023-NVSC2025FR045465

PATIENT
  Age: 57 Year
  Sex: Female

DRUGS (4)
  1. DABRAFENIB [Suspect]
     Active Substance: DABRAFENIB
     Indication: Localised melanoma
     Route: 065
     Dates: start: 201502
  2. DABRAFENIB [Suspect]
     Active Substance: DABRAFENIB
     Indication: Metastatic malignant melanoma
     Dosage: 150 MG, BID
     Route: 065
     Dates: start: 201805
  3. TRAMETINIB [Suspect]
     Active Substance: TRAMETINIB
     Indication: Localised melanoma
     Route: 065
     Dates: start: 201802, end: 2018
  4. COBIMETINIB [Suspect]
     Active Substance: COBIMETINIB
     Indication: Metastatic malignant melanoma
     Dosage: 60 MG, QD (THREE WEEKS OUT OF FOUR)
     Route: 065
     Dates: start: 201805

REACTIONS (7)
  - Pyrexia [Unknown]
  - Asthenia [Unknown]
  - Myalgia [Unknown]
  - Localised melanoma [Unknown]
  - Malignant neoplasm progression [Unknown]
  - Pyrexia [Recovered/Resolved]
  - Product use issue [Unknown]

NARRATIVE: CASE EVENT DATE: 20180101
